FAERS Safety Report 5672984-5 (Version None)
Quarter: 2008Q1

REPORT INFORMATION
  Report Type: 
  Country: None (occurrence: None)
  Receive Date: 20080319
  Receipt Date: 20080116
  Transmission Date: 20080703
  Serious: No
  Sender: FDA-Public Use
  Company Number: US-ASTRAZENECA-2008UW01366

PATIENT
  Age: 45 Year
  Sex: Female

DRUGS (4)
  1. SYMBICORT [Suspect]
     Route: 055
  2. VERAPAMIL [Concomitant]
  3. SYNTHROID [Concomitant]
  4. ALBUTEROL [Concomitant]

REACTIONS (1)
  - RASH [None]
